FAERS Safety Report 7265784-6 (Version None)
Quarter: 2011Q1

REPORT INFORMATION
  Report Type: 
  Country: None (occurrence: None)
  Receive Date: 20110120
  Receipt Date: 20081121
  Transmission Date: 20110831
  Serious: Yes (Death, Hospitalization)
  Sender: FDA-Public Use
  Company Number: 2008SP023815

PATIENT
  Age: 59 Year
  Sex: Male

DRUGS (1)
  1. PEG-INTRON [Suspect]
     Indication: MALIGNANT MELANOMA
     Dosage: 2 MCG/KG; QW; SC
     Route: 058
     Dates: start: 20020418, end: 20040617

REACTIONS (5)
  - DECREASED APPETITE [None]
  - MALIGNANT MELANOMA [None]
  - NIGHT SWEATS [None]
  - MUSCULAR WEAKNESS [None]
  - NEOPLASM MALIGNANT [None]
